FAERS Safety Report 15075013 (Version 1)
Quarter: 2018Q2

REPORT INFORMATION
  Report Type: Spontaneous
  Country: US (occurrence: US)
  Receive Date: 20180627
  Receipt Date: 20180627
  Transmission Date: 20180711
  Serious: Yes (Hospitalization, Other)
  Sender: FDA-Public Use
  Company Number: US-SAOL THERAPEUTICS-2017SAO01568

PATIENT
  Age: 48 Year
  Sex: Male

DRUGS (12)
  1. BROMOCRIPTINE [Concomitant]
     Active Substance: BROMOCRIPTINE
  2. LIORESAL [Suspect]
     Active Substance: BACLOFEN
     Indication: MUSCLE SPASTICITY
     Dosage: UNK
     Route: 037
     Dates: start: 2011
  3. AMANTADINE. [Concomitant]
     Active Substance: AMANTADINE HYDROCHLORIDE
  4. MELATONIN [Concomitant]
     Active Substance: MELATONIN
  5. LIORESAL [Suspect]
     Active Substance: BACLOFEN
     Indication: BRAIN INJURY
     Dosage: 1272 ?G, \DAY
     Route: 037
  6. LIORESAL [Suspect]
     Active Substance: BACLOFEN
     Dosage: 1272.8 ?G, \DAY
     Route: 037
  7. ASPIRIN. [Concomitant]
     Active Substance: ASPIRIN
  8. PROBIOTIC [Concomitant]
     Active Substance: PROBIOTICS NOS
  9. FISH OIL [Concomitant]
     Active Substance: FISH OIL
  10. MAGNESIUM [Concomitant]
     Active Substance: MAGNESIUM
  11. FLOMAX [Concomitant]
     Active Substance: TAMSULOSIN HYDROCHLORIDE
  12. ZINC. [Concomitant]
     Active Substance: ZINC

REACTIONS (4)
  - Drug withdrawal syndrome [Unknown]
  - Malaise [Unknown]
  - Device alarm issue [Recovered/Resolved]
  - Device failure [Recovered/Resolved]

NARRATIVE: CASE EVENT DATE: 20170920
